FAERS Safety Report 10703873 (Version 2)
Quarter: 2015Q1

REPORT INFORMATION
  Report Type: Report from Study
  Country: BR (occurrence: BR)
  Receive Date: 20150112
  Receipt Date: 20150122
  Transmission Date: 20150721
  Serious: Yes (Other)
  Sender: FDA-Public Use
  Company Number: PHHY2015BR002458

PATIENT
  Sex: Male

DRUGS (4)
  1. DIOVAN AMLO FIX [Suspect]
     Active Substance: AMLODIPINE\VALSARTAN
     Indication: HYPERTENSION
     Dosage: 1 DF, QD
     Route: 048
     Dates: start: 2009
  2. CARVEDILOL. [Concomitant]
     Active Substance: CARVEDILOL
     Indication: ANGIOPLASTY
     Dosage: 2 DF, QD
     Route: 048
  3. ASPIRIN. [Concomitant]
     Active Substance: ASPIRIN
     Indication: ANGIOPLASTY
     Dosage: 1 DF, QD
     Route: 048
  4. ROSUVASTATIN [Concomitant]
     Active Substance: ROSUVASTATIN
     Indication: ANGIOPLASTY
     Dosage: 1 DF, QD
     Route: 048

REACTIONS (1)
  - Myocardial infarction [Recovered/Resolved]

NARRATIVE: CASE EVENT DATE: 200908
